FAERS Safety Report 7322807-3 (Version None)
Quarter: 2011Q1

REPORT INFORMATION
  Report Type: 
  Country: None (occurrence: None)
  Receive Date: 20110301
  Receipt Date: 20110216
  Transmission Date: 20110831
  Serious: Yes (Death)
  Sender: FDA-Public Use
  Company Number: US-CELGENEUS-163-20785-11020123

PATIENT
  Sex: Male

DRUGS (3)
  1. THALOMID [Suspect]
     Indication: MULTIPLE MYELOMA
     Route: 048
     Dates: start: 20030201
  2. THALOMID [Suspect]
     Dosage: 50MG-400MG
     Route: 048
     Dates: start: 20030301
  3. THALOMID [Suspect]
     Route: 048
     Dates: start: 20070901

REACTIONS (1)
  - HIP FRACTURE [None]
